FAERS Safety Report 5674142-7 (Version None)
Quarter: 2008Q1

REPORT INFORMATION
  Report Type: 
  Country: None (occurrence: None)
  Receive Date: 20080320
  Receipt Date: 20080310
  Transmission Date: 20080703
  Serious: Yes (Hospitalization)
  Sender: FDA-Public Use
  Company Number: DE-BRISTOL-MYERS SQUIBB COMPANY-14117857

PATIENT
  Sex: Female

DRUGS (1)
  1. HOLOXAN [Suspect]
     Dates: start: 20080101, end: 20080101

REACTIONS (3)
  - APHASIA [None]
  - COMA [None]
  - NEUROTOXICITY [None]
